FAERS Safety Report 7897117-6 (Version None)
Quarter: 2011Q4

REPORT INFORMATION
  Report Type: 
  Country: None (occurrence: None)
  Receive Date: 20111107
  Receipt Date: 20111102
  Transmission Date: 20120403
  Serious: Yes (Hospitalization, Other)
  Sender: FDA-Public Use
  Company Number: US-JNJFOC-20061006140

PATIENT
  Sex: Male
  Weight: 69.4 kg

DRUGS (1)
  1. RISPERDAL [Suspect]
     Indication: SCHIZOAFFECTIVE DISORDER
     Dates: start: 19990429

REACTIONS (7)
  - PANCREATITIS [None]
  - OVERDOSE [None]
  - SUICIDE ATTEMPT [None]
  - JAUNDICE [None]
  - DRUG HYPERSENSITIVITY [None]
  - TREMOR [None]
  - HEADACHE [None]
